FAERS Safety Report 8342024-8 (Version None)
Quarter: 2012Q2

REPORT INFORMATION
  Report Type: 
  Country: None (occurrence: None)
  Receive Date: 20120507
  Receipt Date: 20120502
  Transmission Date: 20120825
  Serious: Yes (Other)
  Sender: FDA-Public Use
  Company Number: US-PFIZER INC-2012108192

PATIENT
  Sex: Female

DRUGS (10)
  1. PRILOSEC [Concomitant]
     Dosage: UNK
  2. OMEGA [Concomitant]
     Dosage: UNK
  3. LYRICA [Suspect]
     Dosage: 150 MG, 2X/DAY
  4. IMURAN [Concomitant]
     Dosage: UNK
  5. MULTI-VITAMINS [Concomitant]
     Dosage: UNK
  6. BACLOFEN [Concomitant]
     Dosage: UNK
  7. TRAZODONE [Concomitant]
     Dosage: UNK
  8. METFORMIN [Concomitant]
     Dosage: UNK
  9. CELEBREX [Concomitant]
     Dosage: UNK
  10. REMICADE [Concomitant]

REACTIONS (1)
  - INTERVERTEBRAL DISC DISORDER [None]
